FAERS Safety Report 10030471 (Version 2)
Quarter: 2014Q1

REPORT INFORMATION
  Report Type: Spontaneous
  Country: US (occurrence: US)
  Receive Date: 20140323
  Receipt Date: 20140323
  Transmission Date: 20141002
  Serious: No
  Sender: FDA-Public Use
  Company Number: US-ALLERGAN-1312085US

PATIENT
  Age: 51 Year
  Sex: Female
  Weight: 58.96 kg

DRUGS (15)
  1. LATISSE 0.03% [Suspect]
     Indication: HYPOTRICHOSIS
     Dosage: 5 NIGHTS ON, 2 NIGHTS OFF
     Route: 061
     Dates: start: 201202
  2. LATISSE 0.03% [Suspect]
     Indication: HYPOTRICHOSIS
  3. REFRESH P.M. [Concomitant]
     Indication: DRY EYE
     Dosage: UNK, BOTH EYES AT NIGHT
     Route: 047
  4. ALEVE [Concomitant]
     Indication: OSTEOARTHRITIS
     Dosage: 1 DF, DAILY
     Route: 048
  5. METO [Concomitant]
     Indication: PRODUCT USED FOR UNKNOWN INDICATION
     Dosage: UNK
     Route: 061
  6. KLARON [Concomitant]
     Indication: ROSACEA
     Dosage: DAILY
     Route: 061
  7. KLARON [Concomitant]
     Indication: ACNE
  8. BLINK [Concomitant]
     Indication: CONTACT LENS THERAPY
     Dosage: UNK
  9. CLEAN [Concomitant]
     Indication: CORRECTIVE LENS USER
     Dosage: UNK
  10. RETINA A [Concomitant]
     Indication: PRODUCT USED FOR UNKNOWN INDICATION
     Dosage: UNK
     Route: 061
  11. MAYBELLINE FULL AND SOFT [Concomitant]
     Indication: PRODUCT USED FOR UNKNOWN INDICATION
  12. EYELINER [Concomitant]
     Indication: PRODUCT USED FOR UNKNOWN INDICATION
  13. LOPERAMIDE [Concomitant]
     Indication: IRRITABLE BOWEL SYNDROME
     Dosage: 10 MG, AS NEEDED
  14. METROGEL [Concomitant]
     Indication: ROSACEA
     Dosage: DAILY
     Route: 061
  15. METROGEL [Concomitant]
     Indication: ACNE

REACTIONS (8)
  - Hordeolum [Recovering/Resolving]
  - Lid margin discharge [Unknown]
  - Eyelash hyperpigmentation [Unknown]
  - Wrong technique in drug usage process [Unknown]
  - Alopecia [Recovering/Resolving]
  - Off label use [Unknown]
  - Skin hyperpigmentation [Unknown]
  - Madarosis [Recovering/Resolving]
